FAERS Safety Report 6632208-9 (Version None)
Quarter: 2010Q1

REPORT INFORMATION
  Report Type: 
  Country: None (occurrence: None)
  Receive Date: 20100312
  Receipt Date: 20100304
  Transmission Date: 20100710
  Serious: Yes (Hospitalization)
  Sender: FDA-Public Use
  Company Number: JP-BRISTOL-MYERS SQUIBB COMPANY-14982300

PATIENT
  Age: 72 Year
  Sex: Female
  Weight: 52 kg

DRUGS (6)
  1. HYDREA [Suspect]
     Indication: ESSENTIAL THROMBOCYTHAEMIA
     Dosage: 1 DF=1000-1500MG/DAY;ALSO ON 17SEP09
     Route: 048
     Dates: start: 19980101, end: 20090917
  2. IMIDAPRIL HCL [Concomitant]
     Dosage: TABS
     Route: 048
  3. BENZBROMARONE [Concomitant]
     Dosage: TABS
     Route: 048
  4. FUROSEMIDE [Concomitant]
     Dosage: TABS
     Route: 048
  5. AMLODIPINE BESYLATE [Concomitant]
     Dosage: TABS
     Route: 048
  6. METENOLONE [Concomitant]
     Dosage: ACETATE,TABS
     Route: 048

REACTIONS (1)
  - INFECTED SKIN ULCER [None]
